FAERS Safety Report 4663016-6 (Version None)
Quarter: 2005Q2

REPORT INFORMATION
  Report Type: 
  Country: None (occurrence: None)
  Receive Date: 20050513
  Receipt Date: 20050506
  Transmission Date: 20051028
  Serious: Yes (Hospitalization, Other)
  Sender: FDA-Public Use
  Company Number: 2005071625

PATIENT
  Age: 66 Year
  Sex: Male

DRUGS (2)
  1. LIPITOR [Suspect]
     Indication: HYPERCHOLESTEROLAEMIA
     Dosage: 10 MG, ORAL
     Route: 048
  2. TRANDOLAPRIL (TRANDOLAPRIL) [Concomitant]

REACTIONS (6)
  - COLON CANCER [None]
  - DISEASE RECURRENCE [None]
  - INTUSSUSCEPTION [None]
  - LIPOMA [None]
  - PAIN [None]
  - STOMACH DISCOMFORT [None]
